FAERS Safety Report 20003505 (Version 1)
Quarter: 2021Q4

REPORT INFORMATION
  Report Type: Spontaneous
  Country: DE (occurrence: DE)
  Receive Date: 20211027
  Receipt Date: 20211027
  Transmission Date: 20220303
  Serious: Yes (Death)
  Sender: FDA-Public Use
  Company Number: DE-DCGMA-21192913

PATIENT
  Age: 77 Year
  Sex: Male

DRUGS (6)
  1. PEMETREXED [Suspect]
     Active Substance: PEMETREXED
     Indication: Non-small cell lung cancer
     Dosage: UNK UNK, UNKNOWN
     Route: 042
     Dates: start: 20210404
  2. SIMVASTATIN [Concomitant]
     Active Substance: SIMVASTATIN
     Indication: Coronary artery disease
     Dosage: 20 MG, DAILY (DAILY DOSE: 20 MG MILLGRAM(S) EVERY DAYS)
     Route: 048
  3. PANTOPRAZOLE [Concomitant]
     Active Substance: PANTOPRAZOLE
     Indication: Product used for unknown indication
     Dosage: 40 MG, DAILY (DAILY DOSE: 40 MG MILLGRAM(S) EVERY DAYS)
     Route: 048
  4. LERCANIDIPINE [Concomitant]
     Active Substance: LERCANIDIPINE
     Indication: Product used for unknown indication
     Dosage: 10 MG, DAILY (DAILY DOSE: 10 MG MILLGRAM(S) EVERY DAYS)
     Route: 048
  5. ASPIRIN [Concomitant]
     Active Substance: ASPIRIN
     Indication: Coronary artery disease
     Dosage: 100 MG, DAILY (DAILY DOSE: 100 MG MILLGRAM(S) EVERY DAYS)
     Route: 048
  6. MEROPENEM [Concomitant]
     Active Substance: MEROPENEM
     Indication: Pyrexia
     Dosage: 3 G, DAILY (DAILY DOSE: 3 G GRAM(S) EVERY DAYS 3 SEPARATED DOSES)
     Route: 042

REACTIONS (7)
  - Pancytopenia [Fatal]
  - Vomiting [Fatal]
  - Diarrhoea [Fatal]
  - Neutropenia [Fatal]
  - Cholecystitis [Fatal]
  - Leukopenia [Fatal]
  - Neutropenic sepsis [Fatal]

NARRATIVE: CASE EVENT DATE: 20210808
